FAERS Safety Report 15613337 (Version 3)
Quarter: 2018Q4

REPORT INFORMATION
  Report Type: Spontaneous
  Country: CO (occurrence: CO)
  Receive Date: 20181113
  Receipt Date: 20181120
  Transmission Date: 20190205
  Serious: Yes (Hospitalization)
  Sender: FDA-Public Use
  Company Number: CO-BIOMARINAP-CO-2018-120756

PATIENT
  Sex: Male

DRUGS (1)
  1. VIMIZIM [Suspect]
     Active Substance: ELOSULFASE ALFA
     Indication: PRODUCT USED FOR UNKNOWN INDICATION
     Dosage: 35 MILLIGRAM
     Route: 065
     Dates: start: 20141027

REACTIONS (6)
  - Apnoea [Recovering/Resolving]
  - Decreased appetite [Unknown]
  - Adenoidal disorder [Recovering/Resolving]
  - Snoring [Recovering/Resolving]
  - Dizziness [Unknown]
  - Sleep apnoea syndrome [Recovering/Resolving]
